FAERS Safety Report 9302562 (Version 1)
Quarter: 2013Q2

REPORT INFORMATION
  Report Type: Spontaneous
  Country: FR (occurrence: None)
  Receive Date: 20130517
  Receipt Date: 20130517
  Transmission Date: 20140414
  Serious: Yes (Hospitalization)
  Sender: FDA-Public Use
  Company Number: AUR-APL-2013-03968

PATIENT
  Age: 62 Year
  Sex: Female

DRUGS (5)
  1. RAMIPRIL (RAMIPRIL) [Suspect]
     Indication: ACUTE MYOCARDIAL INFARCTION
     Route: 048
     Dates: start: 20130312, end: 20130318
  2. BISOPROLOL [Suspect]
     Indication: ACUTE MYOCARDIAL INFARCTION
     Route: 048
     Dates: start: 20130312, end: 20130318
  3. CRESTOR [Suspect]
     Indication: ACUTE MYOCARDIAL INFARCTION
     Route: 048
     Dates: start: 20130312, end: 20130318
  4. EFIENT [Suspect]
     Indication: ACUTE MYOCARDIAL INFARCTION
     Dosage: 10 MG, 1 IN 1 D
     Route: 048
  5. KARDEGIC [Concomitant]

REACTIONS (1)
  - Acute generalised exanthematous pustulosis [None]
